FAERS Safety Report 10415276 (Version 1)
Quarter: 2014Q2

REPORT INFORMATION
  Report Type: Spontaneous
  Country: US (occurrence: None)
  Receive Date: 20140604
  Receipt Date: 20140604
  Transmission Date: 20141212
  Serious: No
  Sender: FDA-Public Use
  Company Number: 163-POMAL-14022848

PATIENT
  Age: 83 Year
  Sex: Male

DRUGS (19)
  1. POMALYST (POMALIDOMIDE) (4 MILLIGRAM, CAPSULES) [Suspect]
     Indication: PLASMA CELL MYELOMA
     Dosage: 3 MG, 21 IN 28 D, PO
     Route: 048
     Dates: start: 20130905
  2. PROCHLORPERAZINE MALEATE [Concomitant]
  3. ONE DAILY COMPLETE (MULTIVITAMINS) [Concomitant]
  4. OMEPRAZOLE (20 MILLIGRAM, ENTERIC-COATED TABLET) [Concomitant]
  5. ENALAPRILMALEATE [Concomitant]
  6. ACETAMINOPHEN EXTRA STRENGTH (PARACETAMOL) [Concomitant]
  7. AMITIZA (;LUBIPROSTONE) [Concomitant]
  8. ANTACID EXTRA STRENGTH (CALCIUM CARBONATE) (CHEWABLE TABLET) [Concomitant]
  9. ATARAX (HYDROXYZINE HYDROCHLORIDE) [Concomitant]
  10. BENZONATATE [Concomitant]
  11. CENTRUM SILVER (TABLETS) [Concomitant]
  12. COUMADIN (WARFARIN SODIUM) (TABLETS) [Concomitant]
  13. DEXAMETHASONE [Concomitant]
  14. DIPHENHYDRAMINE HCL [Concomitant]
  15. DULCOLAX (BISACODYL) [Concomitant]
  16. EMLA (CREAM) [Concomitant]
  17. FERROUS SULFATE (TABLETS) [Concomitant]
  18. LEVOFLOXACIN [Concomitant]
  19. LEVOXYL (LEVOTHYROXINE SODIUM) [Concomitant]

REACTIONS (1)
  - Sleep terror [None]
